FAERS Safety Report 4503614-3 (Version None)
Quarter: 2004Q4

REPORT INFORMATION
  Report Type: 
  Country: None (occurrence: None)
  Receive Date: 20041115
  Receipt Date: 20040916
  Transmission Date: 20050328
  Serious: Yes (Hospitalization, Disabling)
  Sender: FDA-Public Use
  Company Number: 8889

PATIENT
  Age: 44 Year
  Sex: Male

DRUGS (2)
  1. METHOTREXATE [Suspect]
     Indication: ARTHRALGIA
     Dosage: 12.5 MG WEEKLY PO
     Route: 048
     Dates: start: 19930101
  2. FOLIC ACID [Concomitant]

REACTIONS (4)
  - CEREBRAL INFARCTION [None]
  - CEREBROVASCULAR DISORDER [None]
  - EPILEPSY [None]
  - LUMBAR VERTEBRAL FRACTURE [None]
